FAERS Safety Report 9951503 (Version 1)
Quarter: 2014Q1

REPORT INFORMATION
  Report Type: Report from Study
  Country: US (occurrence: US)
  Receive Date: 20140304
  Receipt Date: 20140304
  Transmission Date: 20141002
  Serious: No
  Sender: FDA-Public Use
  Company Number: US-ABBVIE-13P-163-1068786-00

PATIENT
  Age: 31 Year
  Sex: Female

DRUGS (8)
  1. HUMIRA [Suspect]
     Indication: CROHN^S DISEASE
     Dates: start: 20130322
  2. ZOFRAN [Concomitant]
     Indication: NAUSEA
     Dosage: 4 MG 4-6 TIMES PER DAY
  3. ENTOCORT [Concomitant]
     Indication: CROHN^S DISEASE
  4. ASACOL [Concomitant]
     Indication: CROHN^S DISEASE
  5. CLONAZEPAM [Concomitant]
     Indication: ANXIETY
  6. TRAMADOL [Concomitant]
     Indication: PAIN
  7. TRAMADOL [Concomitant]
     Indication: ABDOMINAL PAIN
  8. LINACLOTIDE [Concomitant]
     Indication: CROHN^S DISEASE
     Dosage: 145 MG DAILY

REACTIONS (3)
  - Fatigue [Not Recovered/Not Resolved]
  - Myalgia [Not Recovered/Not Resolved]
  - Musculoskeletal stiffness [Not Recovered/Not Resolved]
